FAERS Safety Report 11905156 (Version 3)
Quarter: 2017Q2

REPORT INFORMATION
  Report Type: Spontaneous
  Country: US (occurrence: US)
  Receive Date: 20160109
  Receipt Date: 20170406
  Transmission Date: 20170829
  Serious: No
  Sender: FDA-Public Use
  Company Number: US-JNJFOC-20151218108

PATIENT
  Sex: Male

DRUGS (2)
  1. RISPERDAL [Suspect]
     Active Substance: RISPERIDONE
     Indication: POST-TRAUMATIC STRESS DISORDER
     Dosage: IN VARYING DOSES OF 0.5 MG AND 1 MG
     Route: 048
     Dates: start: 2007, end: 2007
  2. RISPERDAL [Suspect]
     Active Substance: RISPERIDONE
     Indication: MAJOR DEPRESSION
     Dosage: IN VARYING DOSES OF 0.5 MG AND 1 MG
     Route: 048
     Dates: start: 2007, end: 2007

REACTIONS (5)
  - Gynaecomastia [Unknown]
  - Extrapyramidal disorder [Unknown]
  - Product use in unapproved indication [Unknown]
  - Abnormal weight gain [Unknown]
  - Off label use [Unknown]

NARRATIVE: CASE EVENT DATE: 2007
